FAERS Safety Report 11626341 (Version 1)
Quarter: 2015Q4

REPORT INFORMATION
  Report Type: Spontaneous
  Country: US (occurrence: US)
  Receive Date: 20151013
  Receipt Date: 20151013
  Transmission Date: 20160304
  Serious: Yes (Other)
  Sender: FDA-Public Use
  Company Number: US-ROCHE-1463047

PATIENT
  Age: 30 Year
  Sex: Male

DRUGS (4)
  1. CALCIUM CARBONATE. [Concomitant]
     Active Substance: CALCIUM CARBONATE
     Route: 065
  2. NAPROXEN. [Suspect]
     Active Substance: NAPROXEN
     Indication: JOINT INJURY
     Route: 065
  3. CALCIUM CARBONATE. [Concomitant]
     Active Substance: CALCIUM CARBONATE
     Route: 065
  4. CLINDAMYCIN [Suspect]
     Active Substance: CLINDAMYCIN\CLINDAMYCIN PHOSPHATE
     Indication: JOINT INJURY
     Route: 065

REACTIONS (7)
  - Decreased appetite [Unknown]
  - Irritability [Unknown]
  - Nausea [Unknown]
  - Acute kidney injury [Unknown]
  - Dyspepsia [Unknown]
  - Constipation [Unknown]
  - Thirst [Unknown]
